FAERS Safety Report 4286875-8 (Version None)
Quarter: 2004Q1

REPORT INFORMATION
  Report Type: 
  Country: None (occurrence: None)
  Receive Date: 20040202
  Receipt Date: 20040114
  Transmission Date: 20041129
  Serious: Yes (Death)
  Sender: FDA-Public Use
  Company Number: 234824

PATIENT
  Sex: Male

DRUGS (1)
  1. NOVOSEVEN [Suspect]
     Indication: POST PROCEDURAL HAEMORRHAGE
     Dosage: 90 UG/KG, INTRAVENOUS
     Route: 042
     Dates: start: 20031201, end: 20031201

REACTIONS (1)
  - THROMBOSIS [None]
